FAERS Safety Report 6902665-9 (Version None)
Quarter: 2010Q3

REPORT INFORMATION
  Report Type: 
  Country: None (occurrence: None)
  Receive Date: 20100803
  Receipt Date: 20080709
  Transmission Date: 20110219
  Serious: Yes (Other)
  Sender: FDA-Public Use
  Company Number: US-PFIZER INC-2008042276

PATIENT
  Sex: Female
  Weight: 52.7 kg

DRUGS (5)
  1. LYRICA [Suspect]
     Indication: PARAESTHESIA
     Route: 048
     Dates: start: 20070501
  2. LYRICA [Suspect]
     Indication: NEUROPATHY PERIPHERAL
  3. LYRICA [Suspect]
     Indication: NEURILEMMOMA
  4. SYNTHROID [Concomitant]
     Indication: THYROID DISORDER
  5. LEXAPRO [Concomitant]
     Dates: start: 20070711, end: 20080305

REACTIONS (1)
  - WEIGHT INCREASED [None]
